FAERS Safety Report 8055396-9 (Version None)
Quarter: 2012Q1

REPORT INFORMATION
  Report Type: 
  Country: None (occurrence: None)
  Receive Date: 20120119
  Receipt Date: 20120110
  Transmission Date: 20120608
  Serious: Yes (Hospitalization, Other)
  Sender: FDA-Public Use
  Company Number: PHEH2011US011796

PATIENT
  Sex: Male
  Weight: 69.5 kg

DRUGS (6)
  1. DILAUDID [Concomitant]
     Indication: PAIN
     Dosage: 8 MG, Q4H
     Route: 048
  2. EXJADE [Suspect]
     Indication: IRON OVERLOAD
     Dosage: 1000 MG, DAILY
     Route: 048
     Dates: start: 20110908
  3. ANTICOAGULANTS [Concomitant]
  4. FOLIC ACID [Concomitant]
     Indication: ANAEMIA
     Dosage: 1 MG, DAILY
  5. EXJADE [Suspect]
     Dosage: 1000 MG, DAILY
     Route: 048
  6. FENTANYL [Concomitant]
     Indication: PAIN
     Dosage: 125 UG, Q72H

REACTIONS (22)
  - SICKLE CELL ANAEMIA WITH CRISIS [None]
  - VISION BLURRED [None]
  - ASTHENIA [None]
  - HEADACHE [None]
  - DECREASED APPETITE [None]
  - PAIN IN EXTREMITY [None]
  - VISUAL ACUITY REDUCED [None]
  - BLOOD ALKALINE PHOSPHATASE INCREASED [None]
  - DEPRESSION [None]
  - BLOOD PRESSURE SYSTOLIC INCREASED [None]
  - NIGHT SWEATS [None]
  - EYE DISORDER [None]
  - VITREOUS HAEMORRHAGE [None]
  - PAIN [None]
  - DYSPNOEA [None]
  - VITREOUS DETACHMENT [None]
  - ARTHRALGIA [None]
  - NAUSEA [None]
  - BLINDNESS [None]
  - DIPLOPIA [None]
  - BLOOD BILIRUBIN INCREASED [None]
  - LIBIDO DECREASED [None]
